FAERS Safety Report 7280324-3 (Version None)
Quarter: 2011Q1

REPORT INFORMATION
  Report Type: 
  Country: None (occurrence: None)
  Receive Date: 20110208
  Receipt Date: 20110205
  Transmission Date: 20110831
  Serious: Yes (Death, Hospitalization)
  Sender: FDA-Public Use
  Company Number: US-PFIZER INC-2010100002

PATIENT
  Sex: Female
  Weight: 81.633 kg

DRUGS (2)
  1. SUTENT [Suspect]
     Indication: RENAL CELL CARCINOMA
     Dosage: 50 MG, DAILY
     Route: 048
     Dates: start: 20100704
  2. SUTENT [Suspect]
     Indication: LUNG NEOPLASM MALIGNANT

REACTIONS (3)
  - DEATH [None]
  - MALAISE [None]
  - DEHYDRATION [None]
